FAERS Safety Report 14721286 (Version 1)
Quarter: 2018Q2

REPORT INFORMATION
  Report Type: Not Available
  Country: US (occurrence: US)
  Receive Date: 20180405
  Receipt Date: 20180405
  Transmission Date: 20180711
  Serious: No
  Sender: FDA-Public Use
  Company Number: US-NEUROCRINE BIOSCIENCES INC.-2018NBI00382

PATIENT
  Age: 74 Year
  Sex: Male

DRUGS (2)
  1. INGREZZA [Suspect]
     Active Substance: VALBENAZINE
     Route: 048
     Dates: start: 20171130
  2. INGREZZA [Suspect]
     Active Substance: VALBENAZINE
     Indication: TARDIVE DYSKINESIA
     Route: 048
     Dates: start: 20171122, end: 20171129

REACTIONS (5)
  - Decreased appetite [Unknown]
  - Fatigue [Unknown]
  - Drug dose omission [Unknown]
  - Tardive dyskinesia [Unknown]
  - Restlessness [Unknown]

NARRATIVE: CASE EVENT DATE: 20180128
